FAERS Safety Report 24866648 (Version 1)
Quarter: 2025Q1

REPORT INFORMATION
  Report Type: Spontaneous
  Country: FR (occurrence: FR)
  Receive Date: 20250121
  Receipt Date: 20250121
  Transmission Date: 20250409
  Serious: Yes (Death, Life-Threatening, Hospitalization, Other)
  Sender: CHEPLAPHARM
  Company Number: None

PATIENT
  Age: 70 Year
  Sex: Male

DRUGS (8)
  1. CAPECITABINE [Suspect]
     Active Substance: CAPECITABINE
     Indication: Rectal adenocarcinoma
     Route: 048
     Dates: start: 20080411
  2. BEVACIZUMAB [Suspect]
     Active Substance: BEVACIZUMAB
     Indication: Rectal adenocarcinoma
     Dates: start: 2009
  3. IRINOTECAN [Suspect]
     Active Substance: IRINOTECAN
     Indication: Rectal adenocarcinoma
     Dates: start: 2009
  4. SPIRONOLACTONE [Concomitant]
     Active Substance: SPIRONOLACTONE
     Indication: Hypertension
  5. SPIRONOLACTONE [Concomitant]
     Active Substance: SPIRONOLACTONE
     Indication: Rectal adenocarcinoma
  6. ALTHIAZIDE [Concomitant]
     Active Substance: ALTHIAZIDE
  7. GLICLAZIDE [Concomitant]
     Active Substance: GLICLAZIDE
     Indication: Type 2 diabetes mellitus
  8. FENOFIBRATE [Concomitant]
     Active Substance: FENOFIBRATE
     Indication: Dyslipidaemia

REACTIONS (23)
  - Mucosal inflammation [Unknown]
  - Febrile neutropenia [Unknown]
  - Necrotising oesophagitis [Unknown]
  - Diarrhoea [Unknown]
  - Vomiting [Unknown]
  - Asthenia [Unknown]
  - Lactic acidosis [Unknown]
  - Acute kidney injury [Unknown]
  - Streptococcal sepsis [Unknown]
  - Colitis ulcerative [Unknown]
  - Frequent bowel movements [Unknown]
  - Faeces pale [Unknown]
  - Palmar-plantar erythrodysaesthesia syndrome [Unknown]
  - Mouth ulceration [Unknown]
  - Toxicity to various agents [Unknown]
  - Paralysis [Unknown]
  - Bacterial translocation [Unknown]
  - Malnutrition [Unknown]
  - Amputation [Unknown]
  - Metastases to liver [Unknown]
  - Bone lesion [Unknown]
  - Febrile bone marrow aplasia [Unknown]
  - Candida sepsis [Fatal]

NARRATIVE: CASE EVENT DATE: 20080401
